FAERS Safety Report 5909464-5 (Version None)
Quarter: 2008Q4

REPORT INFORMATION
  Report Type: 
  Country: None (occurrence: None)
  Receive Date: 20081006
  Receipt Date: 20080924
  Transmission Date: 20090506
  Serious: Yes (Hospitalization, Other)
  Sender: FDA-Public Use
  Company Number: JP-PFIZER INC-2008081734

PATIENT
  Age: 83 Year
  Sex: Female
  Weight: 59 kg

DRUGS (7)
  1. SPIRONOLACTONE [Suspect]
     Dosage: DAILY DOSE:25MG
     Dates: start: 20071001
  2. CIPRALAN [Suspect]
     Indication: ATRIAL FIBRILLATION
     Dosage: DAILY DOSE:300MG
     Dates: start: 20070901
  3. FUROSEMIDE [Suspect]
     Dosage: DAILY DOSE:20MG
     Dates: start: 20071001
  4. CANDESARTAN [Concomitant]
     Indication: HYPERTENSION
     Dosage: DAILY DOSE:8MG
     Route: 048
  5. ADALAT [Concomitant]
     Indication: HYPERTENSION
     Route: 048
  6. WARFARIN SODIUM [Concomitant]
     Route: 048
  7. VERAPAMIL HYDROCHLORIDE [Concomitant]
     Route: 048
     Dates: start: 20070901

REACTIONS (4)
  - DEHYDRATION [None]
  - DRUG LEVEL INCREASED [None]
  - HYPOGLYCAEMIA [None]
  - RENAL IMPAIRMENT [None]
